FAERS Safety Report 25321378 (Version 1)
Quarter: 2025Q2

REPORT INFORMATION
  Report Type: Spontaneous
  Country: DE (occurrence: DE)
  Receive Date: 20250515
  Receipt Date: 20250515
  Transmission Date: 20250716
  Serious: Yes (Other)
  Sender: JOHNSON AND JOHNSON
  Company Number: DE-JNJFOC-20250509266

PATIENT
  Sex: Female

DRUGS (1)
  1. SPRAVATO [Suspect]
     Active Substance: ESKETAMINE
     Indication: Suicidal ideation
     Route: 045
     Dates: start: 20240103

REACTIONS (6)
  - Dysgeusia [Not Recovered/Not Resolved]
  - Dizziness [Unknown]
  - Vision blurred [Unknown]
  - Throat irritation [Unknown]
  - Headache [Not Recovered/Not Resolved]
  - Vertigo [Not Recovered/Not Resolved]

NARRATIVE: CASE EVENT DATE: 20240103
